FAERS Safety Report 6466077-7 (Version None)
Quarter: 2009Q4

REPORT INFORMATION
  Report Type: 
  Country: None (occurrence: None)
  Receive Date: 20091201
  Receipt Date: 20091201
  Transmission Date: 20100525
  Serious: Yes (Hospitalization)
  Sender: FDA-Public Use
  Company Number: None

PATIENT
  Sex: Female
  Weight: 59.8748 kg

DRUGS (4)
  1. LYRICA [Suspect]
     Indication: PAIN MANAGEMENT
     Dosage: 150 MG B.I.D. PO FROM 6 JAN 09 DOSE INCREASED FROM 75 X 2 TO 150 X 2 IN MAY 09
     Route: 048
     Dates: start: 20090106
  2. LYRICA [Suspect]
     Indication: VULVOVAGINAL PAIN
     Dosage: 150 MG B.I.D. PO FROM 6 JAN 09 DOSE INCREASED FROM 75 X 2 TO 150 X 2 IN MAY 09
     Route: 048
     Dates: start: 20090106
  3. LYRICA [Suspect]
     Indication: PAIN MANAGEMENT
     Dosage: 150 MG B.I.D. PO FROM 6 JAN 09 DOSE INCREASED FROM 75 X 2 TO 150 X 2 IN MAY 09
     Route: 048
     Dates: start: 20090501
  4. LYRICA [Suspect]
     Indication: VULVOVAGINAL PAIN
     Dosage: 150 MG B.I.D. PO FROM 6 JAN 09 DOSE INCREASED FROM 75 X 2 TO 150 X 2 IN MAY 09
     Route: 048
     Dates: start: 20090501

REACTIONS (5)
  - ATAXIA [None]
  - CONFUSIONAL STATE [None]
  - FLUID RETENTION [None]
  - THINKING ABNORMAL [None]
  - WEIGHT INCREASED [None]
